FAERS Safety Report 6751978-2 (Version None)
Quarter: 2010Q2

REPORT INFORMATION
  Report Type: 
  Country: None (occurrence: None)
  Receive Date: 20100602
  Receipt Date: 20100521
  Transmission Date: 20101027
  Serious: Yes (Other)
  Sender: FDA-Public Use
  Company Number: US-PFIZER INC-2010064989

PATIENT
  Sex: Male
  Weight: 113.38 kg

DRUGS (2)
  1. TOVIAZ [Suspect]
     Indication: HYPERTONIC BLADDER
     Dosage: 8 MG, 1X/DAY
     Route: 048
     Dates: start: 20100519, end: 20100520
  2. TAMSULOSIN [Concomitant]
     Dosage: UNK

REACTIONS (2)
  - MICTURITION DISORDER [None]
  - URINARY RETENTION [None]
